FAERS Safety Report 17718289 (Version 3)
Quarter: 2020Q2

REPORT INFORMATION
  Report Type: Spontaneous
  Country: US (occurrence: US)
  Receive Date: 20200428
  Receipt Date: 20200605
  Transmission Date: 20200714
  Serious: Yes (Death)
  Sender: FDA-Public Use
  Company Number: US-PFIZER INC-2020099958

PATIENT
  Age: 93 Year
  Sex: Male

DRUGS (1)
  1. SUTENT [Suspect]
     Active Substance: SUNITINIB MALATE
     Indication: RENAL CANCER
     Dosage: 50 MG, CYCLIC (ONCE A DAY FOR TWO WEEKS ON AND TWO WEEKS OFF)
     Route: 048

REACTIONS (5)
  - Oral pain [Unknown]
  - Feeding disorder [Unknown]
  - Death [Fatal]
  - Blood count abnormal [Unknown]
  - Ageusia [Unknown]
